FAERS Safety Report 19738218 (Version 1)
Quarter: 2021Q3

REPORT INFORMATION
  Report Type: Spontaneous
  Country: CO (occurrence: CO)
  Receive Date: 20210823
  Receipt Date: 20210823
  Transmission Date: 20211014
  Serious: Yes (Other)
  Sender: FDA-Public Use
  Company Number: CO-PFIZER INC-2021352914

PATIENT
  Age: 65 Year
  Sex: Female

DRUGS (1)
  1. REAMPLA [Suspect]
     Active Substance: PALBOCICLIB
     Dosage: 125 MG (EVERY 21 DAYS)
     Route: 048
     Dates: start: 201912

REACTIONS (14)
  - Seizure [Unknown]
  - Influenza [Recovering/Resolving]
  - Confusional state [Unknown]
  - Chills [Recovering/Resolving]
  - Joint swelling [Unknown]
  - Bone pain [Unknown]
  - Dyspnoea [Recovering/Resolving]
  - Erythema [Unknown]
  - Arthralgia [Unknown]
  - Malaise [Unknown]
  - Headache [Unknown]
  - Neoplasm progression [Unknown]
  - Memory impairment [Unknown]
  - Asthenia [Recovering/Resolving]

NARRATIVE: CASE EVENT DATE: 20210801
